FAERS Safety Report 9172263 (Version 1)
Quarter: 2013Q1

REPORT INFORMATION
  Report Type: Spontaneous
  Country: HR (occurrence: HR)
  Receive Date: 20130319
  Receipt Date: 20130319
  Transmission Date: 20140127
  Serious: Yes (Other)
  Sender: FDA-Public Use
  Company Number: HR-JNJFOC-20130306583

PATIENT
  Age: 64 Year
  Sex: Male

DRUGS (5)
  1. ITRAC-3 [Suspect]
     Indication: ONYCHOMYCOSIS
     Dosage: CYCLE 3,
     Route: 048
     Dates: start: 20130211, end: 20130218
  2. ITRAC-3 [Suspect]
     Indication: ONYCHOMYCOSIS
     Dosage: CYCLE 2,
     Route: 048
     Dates: start: 20130114, end: 20130120
  3. ITRAC-3 [Suspect]
     Indication: ONYCHOMYCOSIS
     Dosage: CYCLE 1, 3X7 DAYS IN PERIOD OF 10 WEEKS
     Route: 048
     Dates: start: 20121217, end: 20121223
  4. LISINOPRIL [Concomitant]
     Route: 065
  5. PROSTATA PLUS [Concomitant]
     Route: 065

REACTIONS (2)
  - Haematuria [Recovered/Resolved]
  - Chromaturia [None]
